FAERS Safety Report 10991995 (Version 2)
Quarter: 2015Q2

REPORT INFORMATION
  Report Type: Spontaneous
  Country: US (occurrence: US)
  Receive Date: 20150406
  Receipt Date: 20150525
  Transmission Date: 20150821
  Serious: No
  Sender: FDA-Public Use
  Company Number: US-JNJFOC-20140908308

PATIENT
  Sex: Male
  Weight: 78 kg

DRUGS (4)
  1. SUBOXONE [Concomitant]
     Active Substance: BUPRENORPHINE HYDROCHLORIDE\NALOXONE HYDROCHLORIDE
     Indication: CROHN^S DISEASE
     Route: 048
  2. REMICADE [Suspect]
     Active Substance: INFLIXIMAB
     Indication: CROHN^S DISEASE
     Route: 042
     Dates: start: 20140827, end: 20140827
  3. REMICADE [Suspect]
     Active Substance: INFLIXIMAB
     Indication: CROHN^S DISEASE
     Dosage: STARTED APPROXIMATELY 11 YEARS AGO
     Route: 042
  4. ZOVIRAX [Concomitant]
     Active Substance: ACYCLOVIR
     Route: 061

REACTIONS (5)
  - Crohn^s disease [Recovering/Resolving]
  - Malabsorption [Unknown]
  - Anaemia vitamin B12 deficiency [Unknown]
  - Iron deficiency anaemia [Recovered/Resolved]
  - Overweight [Unknown]

NARRATIVE: CASE EVENT DATE: 2003
